FAERS Safety Report 5232547-2 (Version None)
Quarter: 2007Q1

REPORT INFORMATION
  Report Type: 
  Country: None (occurrence: None)
  Receive Date: 20070207
  Receipt Date: 20070201
  Transmission Date: 20070707
  Serious: Yes (Other)
  Sender: FDA-Public Use
  Company Number: GB-GLAXOSMITHKLINE-B0455076A

PATIENT
  Sex: Male

DRUGS (1)
  1. MALARONE [Suspect]
     Indication: MALARIA PROPHYLAXIS
     Dosage: 1TAB PER DAY
     Route: 048

REACTIONS (7)
  - ADVERSE DRUG REACTION [None]
  - BALANCE DISORDER [None]
  - CERUMEN IMPACTION [None]
  - HYPOTENSION [None]
  - INFLUENZA LIKE ILLNESS [None]
  - SYNCOPE [None]
  - VIRAL INFECTION [None]
